FAERS Safety Report 11649428 (Version 1)
Quarter: 2015Q4

REPORT INFORMATION
  Report Type: Spontaneous
  Country: FR (occurrence: FR)
  Receive Date: 20151021
  Receipt Date: 20151021
  Transmission Date: 20160304
  Serious: Yes (Hospitalization, Other)
  Sender: FDA-Public Use
  Company Number: FR-GLAXOSMITHKLINE-FR2015GSK148252

PATIENT
  Age: 79 Year
  Sex: Female

DRUGS (13)
  1. LANSOPRAZOLE. [Concomitant]
     Active Substance: LANSOPRAZOLE
     Dosage: 30 MG, QD
     Route: 048
  2. AZILECT [Suspect]
     Active Substance: RASAGILINE MESYLATE
     Indication: PARKINSON^S DISEASE
     Dosage: 1 MG, QD
     Route: 048
     Dates: start: 20150713, end: 20150720
  3. REQUIP [Suspect]
     Active Substance: ROPINIROLE HYDROCHLORIDE
     Dosage: 4 UNK, UNK
     Dates: start: 20150713, end: 20150720
  4. JANUVIA [Concomitant]
     Active Substance: SITAGLIPTIN PHOSPHATE
     Dosage: 100 MG, QD
     Route: 048
     Dates: start: 20150713, end: 20150720
  5. LANTUS [Concomitant]
     Active Substance: INSULIN GLARGINE
     Dosage: 14 IU, QD
     Route: 058
  6. MIANSERINE [Suspect]
     Active Substance: MIANSERIN HYDROCHLORIDE
     Indication: PRODUCT USED FOR UNKNOWN INDICATION
     Dosage: 10 MG, QD
     Route: 048
     Dates: start: 20150713, end: 20150720
  7. NAFTIDROFURYL [Concomitant]
     Active Substance: NAFRONYL
     Dosage: 40 MG, BID
     Route: 048
  8. PREVISCAN (FLUINDIONE) [Concomitant]
     Active Substance: FLUINDIONE
     Dosage: 15 MG, QD
     Route: 048
  9. HYDROCORTISONE. [Concomitant]
     Active Substance: HYDROCORTISONE
     Dosage: 30 MG QD,
     Route: 048
  10. REQUIP [Suspect]
     Active Substance: ROPINIROLE HYDROCHLORIDE
     Indication: PARKINSON^S DISEASE
     Dosage: 6 MG, QD
     Route: 048
  11. MODOPAR [Suspect]
     Active Substance: BENSERAZIDE HYDROCHLORIDE\LEVODOPA
     Indication: PARKINSON^S DISEASE
     Dosage: UNK
     Route: 048
  12. GUTRON [Suspect]
     Active Substance: MIDODRINE
     Indication: HYPOTENSION
     Dosage: 2.5 MG, BID
     Route: 048
     Dates: start: 20150713
  13. LEVOTHYROX [Concomitant]
     Active Substance: LEVOTHYROXINE
     Dosage: UNK
     Route: 048

REACTIONS (3)
  - Agitation [Recovered/Resolved]
  - Hallucination, visual [Recovered/Resolved]
  - Delirium [Recovered/Resolved]

NARRATIVE: CASE EVENT DATE: 20150716
